APPROVED DRUG PRODUCT: THIORIDAZINE HYDROCHLORIDE
Active Ingredient: THIORIDAZINE HYDROCHLORIDE
Strength: 100MG
Dosage Form/Route: TABLET;ORAL
Application: A088284 | Product #001
Applicant: WATSON LABORATORIES INC
Approved: Aug 25, 1983 | RLD: No | RS: No | Type: DISCN